FAERS Safety Report 16140676 (Version 1)
Quarter: 2019Q1

REPORT INFORMATION
  Report Type: Spontaneous
  Country: US (occurrence: US)
  Receive Date: 20190226
  Receipt Date: 20190226
  Transmission Date: 20190418
  Serious: No
  Sender: FDA-Public Use
  Company Number: None

PATIENT
  Age: 72 Year
  Sex: Female
  Weight: 62.5 kg

DRUGS (1)
  1. CARBOPLATIN. [Suspect]
     Active Substance: CARBOPLATIN
     Dates: end: 20171102

REACTIONS (3)
  - 5q minus syndrome [None]
  - Cytogenetic abnormality [None]
  - Platelet count decreased [None]

NARRATIVE: CASE EVENT DATE: 20181017
